FAERS Safety Report 5871698-6 (Version None)
Quarter: 2008Q3

REPORT INFORMATION
  Report Type: 
  Country: None (occurrence: None)
  Receive Date: 20080902
  Receipt Date: 20060103
  Transmission Date: 20090109
  Serious: Yes (Other)
  Sender: FDA-Public Use
  Company Number: 2008AL009336

PATIENT
  Age: 54 Year
  Sex: Female

DRUGS (2)
  1. NAPROXEN DELAYED-RELEASE TABLETS, 500 MG (PUREPAC) (NAPROXEN DELAYED-R [Suspect]
     Indication: ARTHRITIS
     Dosage: 500 MG; PO
     Route: 048
     Dates: start: 20050915, end: 20051015
  2. OMEPRAZOLE [Concomitant]

REACTIONS (1)
  - VITREOUS DETACHMENT [None]
